FAERS Safety Report 22250664 (Version 5)
Quarter: 2024Q1

REPORT INFORMATION
  Report Type: Spontaneous
  Country: AU (occurrence: AU)
  Receive Date: 20230425
  Receipt Date: 20240305
  Transmission Date: 20240409
  Serious: Yes (Other)
  Sender: FDA-Public Use
  Company Number: AU-PFIZER INC-PV202300037284

PATIENT
  Age: 27 Year
  Sex: Female
  Weight: 75 kg

DRUGS (3)
  1. CRIZOTINIB [Suspect]
     Active Substance: CRIZOTINIB
     Indication: Metastatic ocular melanoma
     Dosage: UNK
     Route: 048
  2. CRIZOTINIB [Suspect]
     Active Substance: CRIZOTINIB
     Indication: Malignant melanoma
     Dosage: UNK
     Route: 048
  3. DAROVASERTIB [Concomitant]
     Active Substance: DAROVASERTIB
     Indication: Metastatic ocular melanoma
     Dosage: UNK

REACTIONS (10)
  - Cholestasis [Unknown]
  - Protein total decreased [Unknown]
  - Blood alkaline phosphatase increased [Unknown]
  - Aspartate aminotransferase increased [Unknown]
  - Alanine aminotransferase increased [Unknown]
  - Gamma-glutamyltransferase increased [Unknown]
  - Blood lactate dehydrogenase increased [Unknown]
  - Blood chloride increased [Unknown]
  - Off label use [Unknown]
  - Neoplasm progression [Unknown]
